FAERS Safety Report 25363669 (Version 2)
Quarter: 2025Q2

REPORT INFORMATION
  Report Type: Spontaneous
  Country: BE (occurrence: BE)
  Receive Date: 20250527
  Receipt Date: 20250613
  Transmission Date: 20250716
  Serious: Yes (Other)
  Sender: BIOVITRUM
  Company Number: BE-BIOVITRUM-2025-BE-007069

PATIENT
  Age: 53 Year
  Sex: Female

DRUGS (2)
  1. ANAKINRA [Suspect]
     Active Substance: ANAKINRA
     Indication: Still^s disease
  2. ANAKINRA [Suspect]
     Active Substance: ANAKINRA

REACTIONS (2)
  - Drug ineffective [Unknown]
  - Haemophagocytic lymphohistiocytosis [Unknown]
